FAERS Safety Report 4908838-9 (Version None)
Quarter: 2006Q1

REPORT INFORMATION
  Report Type: 
  Country: None (occurrence: None)
  Receive Date: 20060210
  Receipt Date: 20060202
  Transmission Date: 20060701
  Serious: Yes (Other)
  Sender: FDA-Public Use
  Company Number: BR-JNJFOC-20060201689

PATIENT
  Age: 25 Year
  Sex: Male

DRUGS (2)
  1. HALDOL [Suspect]
     Indication: DRUG USE FOR UNKNOWN INDICATION
     Route: 048
  2. CARBAMAZEPINA [Suspect]
     Indication: DRUG USE FOR UNKNOWN INDICATION
     Route: 048

REACTIONS (4)
  - MUSCLE SPASMS [None]
  - SPEECH DISORDER [None]
  - SUICIDE ATTEMPT [None]
  - TREMOR [None]
